FAERS Safety Report 9273010 (Version 3)
Quarter: 2013Q3

REPORT INFORMATION
  Report Type: Spontaneous
  Country: US (occurrence: US)
  Receive Date: 20130506
  Receipt Date: 20130717
  Transmission Date: 20140515
  Serious: Yes (Other)
  Sender: FDA-Public Use
  Company Number: US-PFIZER INC-2013136235

PATIENT
  Age: 60 Year
  Sex: Female
  Weight: 54 kg

DRUGS (3)
  1. PREMARIN [Suspect]
     Indication: POSTOPERATIVE CARE
     Dosage: 2G, CYCLIC (3X PER WEEK) FOR 8WKS
     Route: 067
     Dates: start: 201305
  2. PREMARIN [Suspect]
     Indication: VAGINAL DYSPLASIA
  3. AMILORIDE W/HYDROCHLOROTHIAZIDE [Concomitant]
     Indication: HYPERTENSION
     Dosage: UNK, DAILY

REACTIONS (1)
  - Vaginal haemorrhage [Recovered/Resolved]
